FAERS Safety Report 16145583 (Version 1)
Quarter: 2019Q2

REPORT INFORMATION
  Report Type: Spontaneous
  Country: US (occurrence: US)
  Receive Date: 20190402
  Receipt Date: 20190402
  Transmission Date: 20190711
  Serious: No
  Sender: FDA-Public Use
  Company Number: US-LUPIN PHARMACEUTICALS INC.-2018-09249

PATIENT
  Age: 31 Year
  Sex: Female

DRUGS (8)
  1. ESCITALOPRAM [Suspect]
     Active Substance: ESCITALOPRAM OXALATE
     Indication: GENERALISED ANXIETY DISORDER
     Dosage: 2.5 MG, UNK
     Route: 065
     Dates: start: 2015
  2. FLUOXETINE [Suspect]
     Active Substance: FLUOXETINE HYDROCHLORIDE
     Indication: GENERALISED ANXIETY DISORDER
     Dosage: 5 MG, UNK
     Route: 065
     Dates: start: 2015
  3. ESCITALOPRAM [Suspect]
     Active Substance: ESCITALOPRAM OXALATE
     Indication: ATTENTION DEFICIT/HYPERACTIVITY DISORDER
  4. CITALOPRAM [Suspect]
     Active Substance: CITALOPRAM HYDROBROMIDE
     Indication: GENERALISED ANXIETY DISORDER
     Dosage: 5 MG, UNK
     Route: 065
     Dates: start: 2015
  5. SERTRALINE [Suspect]
     Active Substance: SERTRALINE HYDROCHLORIDE
     Indication: GENERALISED ANXIETY DISORDER
  6. CITALOPRAM [Suspect]
     Active Substance: CITALOPRAM HYDROBROMIDE
     Indication: ATTENTION DEFICIT/HYPERACTIVITY DISORDER
  7. SERTRALINE [Suspect]
     Active Substance: SERTRALINE HYDROCHLORIDE
     Indication: ATTENTION DEFICIT/HYPERACTIVITY DISORDER
     Dosage: 12.5 MG, UNK
     Route: 065
     Dates: start: 2015
  8. FLUOXETINE [Suspect]
     Active Substance: FLUOXETINE HYDROCHLORIDE
     Indication: ATTENTION DEFICIT/HYPERACTIVITY DISORDER

REACTIONS (4)
  - Dizziness [Unknown]
  - Somnolence [Unknown]
  - Restlessness [Unknown]
  - Gastrointestinal disorder [Unknown]

NARRATIVE: CASE EVENT DATE: 2015
